FAERS Safety Report 19642500 (Version 1)
Quarter: 2021Q3

REPORT INFORMATION
  Report Type: Report from Study
  Country: GB (occurrence: GB)
  Receive Date: 20210731
  Receipt Date: 20210731
  Transmission Date: 20211014
  Serious: Yes (Hospitalization, Other)
  Sender: FDA-Public Use
  Company Number: GB-ACCORD-233783

PATIENT
  Age: 33 Year
  Sex: Female

DRUGS (2)
  1. METHOTREXATE. [Suspect]
     Active Substance: METHOTREXATE
     Indication: PRODUCT USED FOR UNKNOWN INDICATION
     Route: 065
  2. IMRALDI [Suspect]
     Active Substance: ADALIMUMAB
     Indication: PSORIATIC ARTHROPATHY
     Route: 058
     Dates: start: 20210428

REACTIONS (9)
  - Ill-defined disorder [Unknown]
  - Arthralgia [Unknown]
  - Pain in jaw [Unknown]
  - Headache [Unknown]
  - Eye swelling [Unknown]
  - Loss of personal independence in daily activities [Unknown]
  - Swelling face [Unknown]
  - Brain oedema [Unknown]
  - Hemiparesis [Unknown]
